FAERS Safety Report 20351443 (Version 4)
Quarter: 2023Q2

REPORT INFORMATION
  Report Type: Spontaneous
  Country: US (occurrence: US)
  Receive Date: 20220119
  Receipt Date: 20230612
  Transmission Date: 20230721
  Serious: No
  Sender: FDA-Public Use
  Company Number: US-PFIZER INC-2019107055

PATIENT
  Age: 66 Year
  Sex: Female

DRUGS (1)
  1. XELJANZ [Suspect]
     Active Substance: TOFACITINIB CITRATE
     Dosage: 5 MG, 1X/DAY

REACTIONS (12)
  - Condition aggravated [Recovering/Resolving]
  - Arthralgia [Unknown]
  - Coccydynia [Unknown]
  - Pain in extremity [Unknown]
  - Dysstasia [Unknown]
  - Gait disturbance [Unknown]
  - Fatigue [Unknown]
  - Loss of personal independence in daily activities [Unknown]
  - Skin lesion [Unknown]
  - Limb injury [Unknown]
  - Intentional product misuse [Unknown]
  - Product prescribing error [Unknown]
